FAERS Safety Report 21571472 (Version 1)
Quarter: 2022Q4

REPORT INFORMATION
  Report Type: Spontaneous
  Country: DE (occurrence: None)
  Receive Date: 20221109
  Receipt Date: 20221109
  Transmission Date: 20230112
  Serious: Yes (Other)
  Sender: FDA-Public Use
  Company Number: 2022A366135

PATIENT
  Age: 65 Year
  Sex: Female
  Weight: 108 kg

DRUGS (9)
  1. QUETIAPINE [Suspect]
     Active Substance: QUETIAPINE
     Indication: Schizophrenia
     Dosage: 1 TABLET TWICE DAILY SINCE A FEW WEEKS AGO
     Route: 065
  2. QUETIAPINE [Suspect]
     Active Substance: QUETIAPINE
     Indication: Schizophrenia
     Dosage: 12 YEARS (DOSAGES FROM 250 TO 400 MG DAILY)
     Route: 065
  3. QUETIAPINE [Suspect]
     Active Substance: QUETIAPINE
     Indication: Schizophrenia
     Dosage: START DOSAGE ONCE DAILY
     Route: 065
  4. ASPIRIN [Concomitant]
     Active Substance: ASPIRIN
     Indication: Product used for unknown indication
     Dosage: 1-0-0-0
  5. ANASTROZOLE [Concomitant]
     Active Substance: ANASTROZOLE
     Indication: Product used for unknown indication
     Dosage: 1 MG 0-0-1-0
     Route: 065
  6. ELIQUIS [Concomitant]
     Active Substance: APIXABAN
     Indication: Product used for unknown indication
     Dosage: 1-0-1-0
     Route: 065
  7. LOSARTAN [Concomitant]
     Active Substance: LOSARTAN
     Indication: Product used for unknown indication
     Dosage: 1-0-0-0
     Route: 065
  8. METFORMIN [Concomitant]
     Active Substance: METFORMIN HYDROCHLORIDE
     Indication: Product used for unknown indication
     Dosage: 1-0-1-0
     Route: 065
  9. VITAMIN D3 [Concomitant]
     Active Substance: CHOLECALCIFEROL
     Indication: Product used for unknown indication
     Dosage: 1000 IU 1-0-0-0
     Route: 065

REACTIONS (2)
  - Acute psychosis [Unknown]
  - Urine odour abnormal [Unknown]
